FAERS Safety Report 14599241 (Version 1)
Quarter: 2018Q1

REPORT INFORMATION
  Report Type: Spontaneous
  Country: US (occurrence: US)
  Receive Date: 20180303
  Receipt Date: 20180303
  Transmission Date: 20180509
  Serious: Yes (Disabling)
  Sender: FDA-Public Use
  Company Number: None

PATIENT
  Age: 78 Year
  Weight: 85.5 kg

DRUGS (4)
  1. PROPRANOLOL [Concomitant]
     Active Substance: PROPRANOLOL HYDROCHLORIDE
  2. BABY ASPIRIN [Concomitant]
     Active Substance: ASPIRIN
  3. CCIPROFLOXACIN HCL [Suspect]
     Active Substance: CIPROFLOXACIN HYDROCHLORIDE
     Indication: IRRITABLE BOWEL SYNDROME
     Dosage: ?          QUANTITY:10 TABLET(S);?
     Route: 048
     Dates: start: 20170907, end: 20170912
  4. ALIEVE [Concomitant]

REACTIONS (7)
  - Myalgia [None]
  - Pain in extremity [None]
  - Neuralgia [None]
  - Arthralgia [None]
  - Tendon disorder [None]
  - Drug effect incomplete [None]
  - Musculoskeletal pain [None]

NARRATIVE: CASE EVENT DATE: 20170912
